FAERS Safety Report 19067729 (Version 1)
Quarter: 2021Q1

REPORT INFORMATION
  Report Type: Spontaneous
  Country: SI (occurrence: SI)
  Receive Date: 20210329
  Receipt Date: 20210329
  Transmission Date: 20210420
  Serious: Yes (Other)
  Sender: FDA-Public Use
  Company Number: SI-PFIZER INC-2021313716

PATIENT
  Age: 69 Year
  Sex: Female

DRUGS (4)
  1. TRASTUZUMAB. [Suspect]
     Active Substance: TRASTUZUMAB
     Indication: BREAST CANCER METASTATIC
     Dosage: UNK, WEEKLY
     Dates: start: 201704
  2. PERTUZUMAB. [Suspect]
     Active Substance: PERTUZUMAB
     Indication: BREAST CANCER METASTATIC
     Dosage: UNK, WEEKLY
     Dates: start: 201704
  3. PACLITAXEL. [Suspect]
     Active Substance: PACLITAXEL
     Indication: BREAST CANCER METASTATIC
     Dosage: UNK, WEEKLY
     Dates: start: 201704
  4. EXEMESTANE. [Suspect]
     Active Substance: EXEMESTANE
     Indication: BREAST CANCER METASTATIC
     Dosage: UNK
     Dates: start: 201708

REACTIONS (10)
  - Thrombocytopenia [Unknown]
  - Infection [Unknown]
  - Muscle spasms [Unknown]
  - Headache [Unknown]
  - Nausea [Recovered/Resolved]
  - Paraesthesia [Unknown]
  - Neoplasm progression [Recovered/Resolved]
  - Liver disorder [Unknown]
  - Rash [Unknown]
  - Balance disorder [Recovered/Resolved]

NARRATIVE: CASE EVENT DATE: 2017
